FAERS Safety Report 6569012-6 (Version None)
Quarter: 2010Q1

REPORT INFORMATION
  Report Type: 
  Country: None (occurrence: None)
  Receive Date: 20100203
  Receipt Date: 20100126
  Transmission Date: 20100710
  Serious: Yes (Death, Other)
  Sender: FDA-Public Use
  Company Number: US-BAXTER-2009BH018701

PATIENT
  Age: 53 Year
  Sex: Female

DRUGS (1)
  1. HEPARIN SODIUM INJECTION [Suspect]
     Indication: PERIPHERAL VASCULAR DISORDER
     Route: 042
     Dates: start: 20071001, end: 20071101

REACTIONS (4)
  - CORONARY ARTERY DISEASE [None]
  - ORGAN FAILURE [None]
  - PERIPHERAL VASCULAR DISORDER [None]
  - RENAL FAILURE [None]
